FAERS Safety Report 23276415 (Version 1)
Quarter: 2023Q4

REPORT INFORMATION
  Report Type: Spontaneous
  Country: EG (occurrence: EG)
  Receive Date: 20231208
  Receipt Date: 20231208
  Transmission Date: 20240109
  Serious: Yes (Death)
  Sender: FDA-Public Use
  Company Number: EG-PFIZER INC-2021123295

PATIENT
  Age: 81 Year
  Sex: Female

DRUGS (4)
  1. IBRANCE [Suspect]
     Active Substance: PALBOCICLIB
     Indication: Breast cancer metastatic
     Dosage: ONCE DAILY FOR 3 WEEKS ON THEN 1 WEEK OFF
     Route: 048
     Dates: start: 20210217
  2. FASLODEX [Concomitant]
     Active Substance: FULVESTRANT
     Dosage: 2 IM VIALS ONCE MONTHLY WITH 2 IM VIALS AT THE MIDDLE OF FIRST MONTH
     Route: 030
  3. PROLIA [Concomitant]
     Active Substance: DENOSUMAB
     Dosage: VIAL EVERY 4 MONTHS
     Route: 058
  4. OSTEOCARE [CALCIUM;COLECALCIFEROL;MAGNESIUM;ZINC] [Concomitant]
     Dosage: 1 DF, DAILY

REACTIONS (1)
  - Death [Fatal]
